FAERS Safety Report 21544252 (Version 2)
Quarter: 2023Q1

REPORT INFORMATION
  Report Type: Report from Study
  Country: US (occurrence: US)
  Receive Date: 20221102
  Receipt Date: 20230117
  Transmission Date: 20230417
  Serious: No
  Sender: FDA-Public Use
  Company Number: US-ABBVIE-4183119

PATIENT
  Age: 16 Year
  Sex: Male

DRUGS (1)
  1. HUMIRA [Suspect]
     Active Substance: ADALIMUMAB
     Indication: Hidradenitis
     Dosage: CITRATE FREE, INJECTION OF HUMIRA MEDICATION HURTS A LITTLE CESSATION DATE 2022
     Route: 058
     Dates: start: 20221016

REACTIONS (3)
  - Lethargy [Recovered/Resolved]
  - Injection site papule [Recovering/Resolving]
  - Injection site pain [Recovered/Resolved]

NARRATIVE: CASE EVENT DATE: 20221016
